FAERS Safety Report 9928211 (Version 1)
Quarter: 2014Q1

REPORT INFORMATION
  Report Type: Spontaneous
  Country: US (occurrence: US)
  Receive Date: 20140227
  Receipt Date: 20140227
  Transmission Date: 20141002
  Serious: Yes (Other)
  Sender: FDA-Public Use
  Company Number: US-JNJFOC-20140212881

PATIENT
  Sex: Female
  Weight: 88.45 kg

DRUGS (7)
  1. TOPAMAX [Suspect]
     Indication: LIBIDO INCREASED
     Route: 048
  2. TOPAMAX [Suspect]
     Indication: LIBIDO INCREASED
     Route: 048
  3. TOPAMAX [Suspect]
     Indication: LIBIDO INCREASED
     Route: 048
  4. CYMBALTA [Concomitant]
     Indication: DEPRESSION
     Route: 048
  5. PANTOPRAZOLE [Concomitant]
     Indication: GASTRIC DISORDER
     Dosage: 1 OR 2 TIMES DAILY
     Route: 048
     Dates: start: 2011
  6. BUSPIRONE [Concomitant]
     Indication: SEDATION
     Dosage: 1-3 TIMES DAILY
     Route: 048
     Dates: start: 2008
  7. HYDROCODONE/ACETAMINOPHEN [Concomitant]
     Indication: PAIN
     Dosage: 5 MG/325 MG
     Route: 048
     Dates: start: 2011

REACTIONS (3)
  - Suicidal ideation [Recovered/Resolved]
  - Arthritis [Recovering/Resolving]
  - Off label use [Unknown]
